FAERS Safety Report 9962869 (Version 2)
Quarter: 2014Q1

REPORT INFORMATION
  Report Type: Report from Study
  Country: PR (occurrence: PR)
  Receive Date: 20140305
  Receipt Date: 20140305
  Transmission Date: 20141002
  Serious: No
  Sender: FDA-Public Use
  Company Number: PR-ABBVIE-12P-131-0909090-00

PATIENT
  Age: 52 Year
  Sex: Female
  Weight: 74 kg

DRUGS (14)
  1. HUMIRA [Suspect]
     Indication: RHEUMATOID ARTHRITIS
     Route: 058
     Dates: start: 2002, end: 201305
  2. HUMIRA [Suspect]
     Route: 058
     Dates: start: 201306
  3. RELAFEN [Concomitant]
     Indication: RHEUMATOID ARTHRITIS
     Route: 048
  4. SIMVASTATIN [Concomitant]
     Indication: RHEUMATOID ARTHRITIS
     Route: 048
  5. ATENOLOL [Concomitant]
     Indication: HYPERTENSION
     Route: 048
  6. ZANTAC [Concomitant]
     Route: 048
  7. FOLIC ACID [Concomitant]
     Indication: SUPPLEMENTATION THERAPY
     Route: 048
  8. LEUCOVORIN [Concomitant]
     Indication: SUPPLEMENTATION THERAPY
     Route: 048
  9. METHOTREXATE [Concomitant]
     Indication: RHEUMATOID ARTHRITIS
     Route: 048
  10. LIPITOR [Concomitant]
     Indication: BLOOD CHOLESTEROL ABNORMAL
     Route: 048
  11. FENOFIBRATE [Concomitant]
     Route: 048
  12. FIORICET [Concomitant]
     Indication: MIGRAINE
     Route: 048
  13. CLARINEX [Concomitant]
     Indication: SINUSITIS
     Route: 048
  14. RESTASIS [Concomitant]
     Route: 047

REACTIONS (1)
  - Nasopharyngitis [Recovered/Resolved]
